FAERS Safety Report 6391370-6 (Version None)
Quarter: 2009Q4

REPORT INFORMATION
  Report Type: 
  Country: None (occurrence: None)
  Receive Date: 20091006
  Receipt Date: 20091006
  Transmission Date: 20100525
  Serious: Yes (Disabling)
  Sender: FDA-Public Use
  Company Number: None

PATIENT
  Age: 72 Year
  Sex: Female
  Weight: 70.3075 kg

DRUGS (1)
  1. LATISSE [Suspect]
     Indication: GROWTH OF EYELASHES
     Dosage: ONE DROP 1XDAILY
     Route: 047
     Dates: start: 20090623, end: 20090826

REACTIONS (5)
  - DRY EYE [None]
  - EYE IRRITATION [None]
  - EYE PRURITUS [None]
  - LACRIMATION INCREASED [None]
  - OCULAR HYPERAEMIA [None]
